FAERS Safety Report 8157809 (Version 4)
Quarter: 2013Q1

REPORT INFORMATION
  Report Type: Spontaneous
  Country: US (occurrence: US)
  Receive Date: 20110927
  Receipt Date: 20130215
  Transmission Date: 20140127
  Serious: Yes (Other)
  Sender: FDA-Public Use
  Company Number: US-ASTRAZENECA-2011SE12618

PATIENT
  Age: 43 Year
  Sex: Male

DRUGS (7)
  1. SEROQUEL [Suspect]
     Indication: INSOMNIA
     Dosage: 100 MG HS PRN
     Route: 048
     Dates: start: 20030821
  2. SEROQUEL [Suspect]
     Indication: ANGER
     Dosage: 100 MG HS PRN
     Route: 048
     Dates: start: 20030821
  3. SEROQUEL [Suspect]
     Indication: AGITATION
     Dosage: 100 MG HS PRN
     Route: 048
     Dates: start: 20030821
  4. EFFEXOR [Concomitant]
     Dates: start: 20030821
  5. WELLBUTRIN SR [Concomitant]
     Dates: start: 20030821
  6. NEURONTIN [Concomitant]
     Dates: start: 200401
  7. WELLBUTRIN [Concomitant]
     Dates: start: 2004

REACTIONS (3)
  - Pancreatitis [Unknown]
  - Diabetic coma [Unknown]
  - Type 2 diabetes mellitus [Unknown]
